FAERS Safety Report 18117864 (Version 1)
Quarter: 2020Q3

REPORT INFORMATION
  Report Type: Spontaneous
  Country: US (occurrence: US)
  Receive Date: 20200805
  Receipt Date: 20200805
  Transmission Date: 20201103
  Serious: Yes (Other)
  Sender: FDA-Public Use
  Company Number: None

PATIENT
  Age: 79 Year
  Sex: Male
  Weight: 80.6 kg

DRUGS (1)
  1. REMDESIVIR. [Suspect]
     Active Substance: REMDESIVIR
     Indication: COVID-19
     Dosage: ?          OTHER FREQUENCY:ONCE;?
     Route: 042
     Dates: start: 20200802, end: 20200802

REACTIONS (12)
  - Hypertension [None]
  - Seizure [None]
  - Troponin increased [None]
  - Pneumonia [None]
  - Aspartate aminotransferase increased [None]
  - Hyperlipidaemia [None]
  - Dementia [None]
  - Cerebrovascular accident [None]
  - Alanine aminotransferase increased [None]
  - Type 2 diabetes mellitus [None]
  - Dyspnoea [None]
  - Fibrin D dimer increased [None]

NARRATIVE: CASE EVENT DATE: 20200802
